FAERS Safety Report 10689300 (Version 1)
Quarter: 2015Q1

REPORT INFORMATION
  Report Type: Other
  Country: JP (occurrence: JP)
  Receive Date: 20150105
  Receipt Date: 20150105
  Transmission Date: 20150720
  Serious: Yes (Hospitalization, Other)
  Sender: FDA-Public Use
  Company Number: JP-ACTELION-A-CH2014-110221

PATIENT
  Age: 8 Year
  Sex: Female
  Weight: 20.1 kg

DRUGS (1)
  1. BRAZAVES [Suspect]
     Active Substance: MIGLUSTAT
     Indication: NIEMANN-PICK DISEASE
     Dosage: UNK
     Route: 048

REACTIONS (6)
  - Surgery [Unknown]
  - Cerebral atrophy [Unknown]
  - Dysphagia [Unknown]
  - Nuclear magnetic resonance imaging brain abnormal [Unknown]
  - Neurological decompensation [Unknown]
  - Pneumonia aspiration [Unknown]
